FAERS Safety Report 8906412 (Version 1)
Quarter: 2012Q4

REPORT INFORMATION
  Report Type: Spontaneous
  Country: US (occurrence: None)
  Receive Date: 20121109
  Receipt Date: 20121109
  Transmission Date: 20130627
  Serious: No
  Sender: FDA-Public Use
  Company Number: None

PATIENT

DRUGS (1)
  1. RECLAST [Suspect]
     Indication: OSTEOARTHRITIS
     Dates: start: 20120821

REACTIONS (8)
  - Pyrexia [None]
  - Chills [None]
  - Neck pain [None]
  - Headache [None]
  - Bone pain [None]
  - Chest pain [None]
  - Arthralgia [None]
  - Depression [None]
